FAERS Safety Report 4977944-5 (Version None)
Quarter: 2006Q2

REPORT INFORMATION
  Report Type: 
  Country: None (occurrence: None)
  Receive Date: 20060417
  Receipt Date: 20060405
  Transmission Date: 20061013
  Serious: Yes (Hospitalization, Other)
  Sender: FDA-Public Use
  Company Number: 2006031815

PATIENT
  Age: 30 Year
  Sex: Male
  Weight: 95.2554 kg

DRUGS (2)
  1. NEURONTIN [Suspect]
     Indication: ILL-DEFINED DISORDER
  2. VIOXX [Concomitant]

REACTIONS (10)
  - BLOOD ALCOHOL INCREASED [None]
  - CARDIOMEGALY [None]
  - DEPRESSED MOOD [None]
  - FLAT AFFECT [None]
  - HAEMOPNEUMOTHORAX [None]
  - MAJOR DEPRESSION [None]
  - OVERDOSE [None]
  - SELF INJURIOUS BEHAVIOUR [None]
  - SELF-MEDICATION [None]
  - SUICIDE ATTEMPT [None]
